FAERS Safety Report 25710669 (Version 2)
Quarter: 2025Q4

REPORT INFORMATION
  Report Type: Report from Study
  Country: CO (occurrence: CO)
  Receive Date: 20250821
  Receipt Date: 20251001
  Transmission Date: 20260118
  Serious: Yes (Other)
  Sender: TAKEDA
  Company Number: CO-TAKEDA-2025TUS057616

PATIENT
  Age: 43 Year
  Sex: Female
  Weight: 63.039 kg

DRUGS (5)
  1. VEDOLIZUMAB [Suspect]
     Active Substance: VEDOLIZUMAB
     Indication: Colitis ulcerative
     Dosage: 300 MILLIGRAM
  2. MESALAMINE [Concomitant]
     Active Substance: MESALAMINE
     Indication: Diarrhoea
     Dosage: UNK
  3. MESALAMINE [Concomitant]
     Active Substance: MESALAMINE
     Indication: Haemorrhage
  4. BUTYLSCOPOLAMINE BROMIDE\METAMIZOLE SODIUM [Concomitant]
     Active Substance: BUTYLSCOPOLAMINE BROMIDE\METAMIZOLE SODIUM
     Indication: Diarrhoea
     Dosage: UNK
  5. BUTYLSCOPOLAMINE BROMIDE\METAMIZOLE SODIUM [Concomitant]
     Active Substance: BUTYLSCOPOLAMINE BROMIDE\METAMIZOLE SODIUM
     Indication: Haemorrhage

REACTIONS (9)
  - Haematochezia [Recovered/Resolved]
  - Fluid retention [Unknown]
  - Gastritis [Recovering/Resolving]
  - Proctalgia [Recovering/Resolving]
  - Diarrhoea [Recovered/Resolved]
  - Hyperhidrosis [Recovering/Resolving]
  - Abdominal pain [Recovering/Resolving]
  - Vomiting [Recovering/Resolving]
  - Nausea [Unknown]

NARRATIVE: CASE EVENT DATE: 20250614
